FAERS Safety Report 22342184 (Version 1)
Quarter: 2023Q2

REPORT INFORMATION
  Report Type: Report from Study
  Country: US (occurrence: US)
  Receive Date: 20230519
  Receipt Date: 20230519
  Transmission Date: 20230722
  Serious: Yes (Hospitalization, Other)
  Sender: FDA-Public Use
  Company Number: US-ABBVIE-4769714

PATIENT
  Sex: Male

DRUGS (4)
  1. HUMIRA [Suspect]
     Active Substance: ADALIMUMAB
     Indication: Product used for unknown indication
     Route: 058
     Dates: start: 2009
  2. HUMIRA [Suspect]
     Active Substance: ADALIMUMAB
     Dosage: DOSAGE WAS UPPED
     Route: 058
  3. RINVOQ [Suspect]
     Active Substance: UPADACITINIB
     Indication: Psoriatic arthropathy
     Route: 048
  4. REPATHA [Suspect]
     Active Substance: EVOLOCUMAB
     Indication: Product used for unknown indication
     Route: 065

REACTIONS (9)
  - Dyspnoea [Unknown]
  - Drug ineffective [Unknown]
  - Cardiac failure [Unknown]
  - Coronary arterial stent insertion [Unknown]
  - Atrioventricular block [Unknown]
  - Arterial occlusive disease [Unknown]
  - Psoriasis [Unknown]
  - Headache [Unknown]
  - Muscle spasms [Unknown]
